FAERS Safety Report 4832108-0 (Version None)
Quarter: 2005Q4

REPORT INFORMATION
  Report Type: 
  Country: None (occurrence: None)
  Receive Date: 20051116
  Receipt Date: 20051031
  Transmission Date: 20060501
  Serious: Yes (Hospitalization, Disabling, Other)
  Sender: FDA-Public Use
  Company Number: 2005JP001846

PATIENT
  Age: 44 Year
  Sex: Male
  Weight: 60 kg

DRUGS (4)
  1. FUNGUARD (MICAFUNGIN) INJECTION [Suspect]
     Dosage: IV NOS
     Route: 042
     Dates: start: 20050513
  2. TARGOCID [Suspect]
     Dates: start: 20050502, end: 20050506
  3. TARGOCID [Suspect]
     Dates: start: 20050511, end: 20050513
  4. VANCOMYCIN [Suspect]
     Dates: start: 20050513, end: 20050515

REACTIONS (7)
  - DIARRHOEA [None]
  - DISSEMINATED INTRAVASCULAR COAGULATION [None]
  - HYPOXIA [None]
  - INTERSTITIAL LUNG DISEASE [None]
  - LIVER DISORDER [None]
  - LYMPHOCYTE STIMULATION TEST POSITIVE [None]
  - PULMONARY OEDEMA [None]
